FAERS Safety Report 8965413 (Version 1)
Quarter: 2012Q4

REPORT INFORMATION
  Report Type: 
  Country: UA (occurrence: UA)
  Receive Date: 20121214
  Receipt Date: 20121214
  Transmission Date: 20130627
  Serious: Yes (Death, Other)
  Sender: FDA-Public Use
  Company Number: PHHY2012UA115192

PATIENT
  Age: 45 Year
  Sex: Female

DRUGS (5)
  1. RETARPEN [Suspect]
     Indication: RHEUMATIC DISORDER
     Dosage: 2400000 IU, UNK
     Route: 030
     Dates: start: 20060313, end: 20060313
  2. SYNCUMAR [Concomitant]
  3. SPIRONOLACTONE [Concomitant]
  4. UREGYT [Concomitant]
  5. KARDIKET [Concomitant]

REACTIONS (4)
  - Death [Fatal]
  - Cardiac arrest [Unknown]
  - Respiratory arrest [Unknown]
  - Loss of consciousness [Unknown]
